FAERS Safety Report 9522216 (Version 1)
Quarter: 2013Q1

REPORT INFORMATION
  Report Type: Spontaneous
  Country: US (occurrence: None)
  Receive Date: 20130305
  Receipt Date: 20130305
  Transmission Date: 20140127
  Serious: Yes (Other)
  Sender: FDA-Public Use
  Company Number: 163-21880-12011576

PATIENT
  Age: 56 Year
  Sex: Female

DRUGS (1)
  1. REVLIMID (LENALIDOMIDE) (25 MILLIGRAM, CAPSULES) [Suspect]
     Indication: LYMPHOMA
     Dosage: 25 MG, QD X 21D, PO
     Route: 048
     Dates: start: 20120102, end: 20120109

REACTIONS (1)
  - Platelet count decreased [None]
